FAERS Safety Report 7283248-0 (Version None)
Quarter: 2011Q1

REPORT INFORMATION
  Report Type: 
  Country: None (occurrence: None)
  Receive Date: 20110209
  Receipt Date: 20110131
  Transmission Date: 20110831
  Serious: Yes (Other)
  Sender: FDA-Public Use
  Company Number: PHHY2011VE08116

PATIENT
  Sex: Female

DRUGS (2)
  1. ACLASTA [Suspect]
     Dosage: 5 MG PER YEAR
     Dates: start: 20100101
  2. ACLASTA [Suspect]
     Dosage: 5 MG PER YEAR
     Dates: start: 20080101

REACTIONS (1)
  - MYELODYSPLASTIC SYNDROME [None]
